FAERS Safety Report 24728565 (Version 3)
Quarter: 2024Q4

REPORT INFORMATION
  Report Type: Spontaneous
  Country: CO (occurrence: CO)
  Receive Date: 20241212
  Receipt Date: 20241227
  Transmission Date: 20250115
  Serious: No
  Sender: PFIZER
  Company Number: CO-PFIZER INC-202400317533

PATIENT
  Age: 6 Year
  Sex: Male
  Weight: 15 kg

DRUGS (1)
  1. GENOTROPIN [Suspect]
     Active Substance: SOMATROPIN
     Indication: Short stature
     Dosage: 0.4 MG, DAILY
     Route: 058
     Dates: start: 202408

REACTIONS (3)
  - Device mechanical issue [Unknown]
  - Device occlusion [Unknown]
  - Drug dose omission by device [Unknown]

NARRATIVE: CASE EVENT DATE: 20241201
